FAERS Safety Report 10162374 (Version 2)
Quarter: 2014Q3

REPORT INFORMATION
  Report Type: Spontaneous
  Country: US (occurrence: US)
  Receive Date: 20140509
  Receipt Date: 20140703
  Transmission Date: 20150326
  Serious: Yes (Other)
  Sender: FDA-Public Use
  Company Number: US-BAYER-2014-067574

PATIENT
  Age: 25 Year
  Sex: Female
  Weight: 55.33 kg

DRUGS (10)
  1. YAZ [Suspect]
     Active Substance: DROSPIRENONE\ETHINYL ESTRADIOL
     Dosage: UNK
     Dates: start: 20110420, end: 20120606
  2. METHYLPREDNISOLONE [Concomitant]
     Active Substance: METHYLPREDNISOLONE
     Dosage: 4 MG, UNK
     Route: 048
     Dates: start: 20020524
  3. HYDROCODONE BIT/APAP [Concomitant]
     Active Substance: ACETAMINOPHEN\HYDROCODONE BITARTRATE
  4. MEDROL [Concomitant]
     Active Substance: METHYLPREDNISOLONE
  5. GIANVI [Suspect]
     Active Substance: DROSPIRENONE\ETHINYL ESTRADIOL
     Dosage: UNK
     Dates: start: 20110420, end: 20120606
  6. XANAX [Concomitant]
     Active Substance: ALPRAZOLAM
     Dosage: 1 MG, PRN
     Route: 048
  7. SULFAMETHOXAZOLE [Concomitant]
     Active Substance: SULFAMETHOXAZOLE
     Dosage: 600/160
     Route: 048
     Dates: start: 20120305
  8. LORATADINE. [Concomitant]
     Active Substance: LORATADINE
     Dosage: 10 MG, DAILY
     Route: 048
  9. LAMICTAL [Concomitant]
     Active Substance: LAMOTRIGINE
     Dosage: 200 MG, UNK
     Route: 048
  10. ORTHO TRICYCLEN [Concomitant]

REACTIONS (9)
  - Nervousness [None]
  - Deep vein thrombosis [None]
  - Injury [None]
  - Pain [None]
  - Pulmonary embolism [None]
  - Fear of death [None]
  - Pelvic venous thrombosis [None]
  - Depression [None]
  - Emotional distress [None]

NARRATIVE: CASE EVENT DATE: 20120606
